FAERS Safety Report 7186735-9 (Version None)
Quarter: 2010Q4

REPORT INFORMATION
  Report Type: 
  Country: None (occurrence: None)
  Receive Date: 20101222
  Receipt Date: 20101220
  Transmission Date: 20110411
  Serious: Yes (Other)
  Sender: FDA-Public Use
  Company Number: JP-PFIZER INC-2010163050

PATIENT
  Age: 85 Year
  Sex: Female

DRUGS (7)
  1. ALDACTONE [Suspect]
     Indication: OEDEMA
     Dosage: 50 MG, DAILY
     Route: 048
     Dates: start: 20101014
  2. LASIX [Suspect]
     Indication: CARDIAC FAILURE
     Dosage: 40 MG, DAILY
     Route: 048
     Dates: end: 20101129
  3. DIGOXIN [Concomitant]
     Indication: ANGINA PECTORIS
     Dosage: 0.125 MG, DAILY
     Route: 048
  4. FAMOTIDINE [Concomitant]
     Indication: GASTRIC ULCER
     Dosage: 20 MG, DAILY
  5. DEPROMEL [Concomitant]
     Indication: DEPRESSION
     Dosage: 25 MG, DAILY
     Route: 048
  6. RESLIN [Concomitant]
     Dosage: 25 MG, DAILY
     Route: 048
     Dates: start: 20101127
  7. MYSLEE [Concomitant]
     Indication: INSOMNIA
     Dosage: 5 MG, DAILY
     Route: 048
     Dates: start: 20101127

REACTIONS (3)
  - AMNESIA [None]
  - ERYTHEMA MULTIFORME [None]
  - HYPOAESTHESIA [None]
